FAERS Safety Report 7901598-9 (Version None)
Quarter: 2011Q4

REPORT INFORMATION
  Report Type: 
  Country: None (occurrence: None)
  Receive Date: 20111108
  Receipt Date: 20111107
  Transmission Date: 20120403
  Serious: Yes (Hospitalization)
  Sender: FDA-Public Use
  Company Number: US-ROXANE LABORATORIES, INC.-2011-RO-01445RO

PATIENT
  Sex: Female
  Weight: 66 kg

DRUGS (9)
  1. VITAMIN B COMPLEX CAP [Concomitant]
  2. ANTIOXIDANTS [Concomitant]
  3. OXCARBAZEPINE [Suspect]
     Indication: CONVULSION
     Dates: start: 20070101
  4. SYNTHROID [Concomitant]
     Indication: AUTOIMMUNE THYROIDITIS
     Dosage: 62.5 MCG
     Dates: start: 20110425
  5. VITAMIN D [Concomitant]
  6. LEVOTHYROXINE SODIUM [Concomitant]
     Indication: AUTOIMMUNE THYROIDITIS
  7. LOVAZA [Concomitant]
  8. OXCARBAZEPINE [Suspect]
     Dosage: 600 MG
     Dates: start: 20091015, end: 20111101
  9. OXCARBAZEPINE [Suspect]
     Dosage: 150 MG

REACTIONS (5)
  - SERUM SEROTONIN INCREASED [None]
  - CONVULSION [None]
  - COMA [None]
  - LABORATORY TEST ABNORMAL [None]
  - AMMONIA INCREASED [None]
